FAERS Safety Report 8315004-6 (Version None)
Quarter: 2012Q2

REPORT INFORMATION
  Report Type: 
  Country: None (occurrence: None)
  Receive Date: 20120426
  Receipt Date: 20120227
  Transmission Date: 20120825
  Serious: No
  Sender: FDA-Public Use
  Company Number: US-MUTUAL PHARMACEUTICAL COMPANY, INC.-CLCY20120037

PATIENT
  Sex: Male
  Weight: 93.07 kg

DRUGS (5)
  1. ALLOPURINOL [Concomitant]
     Indication: GOUT
     Route: 048
  2. IBUPROFEN [Concomitant]
     Indication: PAIN
     Route: 048
  3. PRILOSEC [Concomitant]
     Indication: GASTROOESOPHAGEAL REFLUX DISEASE
     Route: 048
  4. COLCRYS [Suspect]
     Indication: GOUT
     Route: 048
     Dates: start: 20110101
  5. UNSPECIFIED MEDICATION FOR HIGH BLOOD PRESSURE [Concomitant]
     Indication: HYPERTENSION
     Route: 048

REACTIONS (1)
  - DRUG INEFFECTIVE [None]
